FAERS Safety Report 7326754-2 (Version None)
Quarter: 2011Q1

REPORT INFORMATION
  Report Type: 
  Country: None (occurrence: None)
  Receive Date: 20110302
  Receipt Date: 20110203
  Transmission Date: 20110831
  Serious: No
  Sender: FDA-Public Use
  Company Number: US-B.I. PHARMACEUTICALS,INC./RIDGEFIELD-2011-BP-03382BP

PATIENT
  Age: 82 Year
  Sex: Female

DRUGS (10)
  1. PREMARIN [Concomitant]
     Indication: HOT FLUSH
     Route: 048
  2. ZANTAC 150 [Suspect]
     Indication: DYSPEPSIA
     Dosage: 300 MG
     Route: 048
     Dates: start: 20100101
  3. OXYCODONE [Concomitant]
     Indication: PAIN
     Route: 048
  4. PLAVIX [Concomitant]
     Route: 048
  5. SYNTHROID [Concomitant]
     Indication: HYPOTHYROIDISM
     Route: 048
  6. MICARDIS [Concomitant]
     Route: 048
  7. CENTRUM SILVER [Concomitant]
     Indication: ROUTINE HEALTH MAINTENANCE
     Route: 048
  8. PAXIL [Concomitant]
     Route: 048
  9. ZANTAC 150 [Suspect]
  10. ZOCOR [Concomitant]
     Indication: BLOOD CHOLESTEROL INCREASED
     Route: 048

REACTIONS (1)
  - DRUG INEFFECTIVE [None]
